FAERS Safety Report 13840329 (Version 1)
Quarter: 2020Q3

REPORT INFORMATION
  Report Type: Report from Study
  Country: JP (occurrence: JP)
  Receive Date: 20170807
  Receipt Date: 20170807
  Transmission Date: 20201105
  Serious: Yes (Death, Hospitalization)
  Sender: FDA-Public Use
  Company Number: JP-ASTRAZENECA-2016SF14394

PATIENT
  Age: 29776 Day
  Sex: Female

DRUGS (14)
  1. MEDI4736 [Suspect]
     Active Substance: DURVALUMAB
     Indication: BLADDER TRANSITIONAL CELL CARCINOMA
     Route: 042
     Dates: start: 20161019, end: 20161019
  2. SENNARIDE? [Concomitant]
     Indication: CONSTIPATION
     Dosage: 24.000 MG PRN
     Route: 048
     Dates: start: 20161020
  3. AMLODIPINE BESILATE [Concomitant]
     Active Substance: AMLODIPINE BESYLATE
     Indication: HYPERTENSION
     Dosage: 5.000 MG QD
     Route: 048
  4. LOXOPROFEN SODIUM [Concomitant]
     Active Substance: LOXOPROFEN SODIUM
     Indication: CANCER PAIN
     Dosage: 60.000 MG QD
     Route: 048
     Dates: start: 20161022, end: 20161022
  5. MEDI4736 [Suspect]
     Active Substance: DURVALUMAB
     Indication: BLADDER TRANSITIONAL CELL CARCINOMA
     Route: 042
     Dates: start: 20161216, end: 20161216
  6. TREMELIMUMAB. [Suspect]
     Active Substance: TREMELIMUMAB
     Indication: BLADDER TRANSITIONAL CELL CARCINOMA
     Route: 042
     Dates: end: 20170106
  7. CEFTRIAXONE SODIUM. [Concomitant]
     Active Substance: CEFTRIAXONE SODIUM
     Indication: TUMOUR ASSOCIATED FEVER
     Dosage: 2.000 G BID
     Route: 042
     Dates: start: 20161022, end: 20161028
  8. MEDI4736 [Suspect]
     Active Substance: DURVALUMAB
     Indication: BLADDER TRANSITIONAL CELL CARCINOMA
     Route: 042
     Dates: end: 20170106
  9. TREMELIMUMAB. [Suspect]
     Active Substance: TREMELIMUMAB
     Indication: BLADDER TRANSITIONAL CELL CARCINOMA
     Dosage: 75 MG EVERY FOUR WEEKS
     Route: 042
     Dates: start: 20161019, end: 20161019
  10. MECOBALAMIN [Concomitant]
     Active Substance: METHYLCOBALAMIN
     Indication: NEUROPATHY PERIPHERAL
     Dosage: 1500.000 UG TID
     Route: 048
  11. TREMELIMUMAB. [Suspect]
     Active Substance: TREMELIMUMAB
     Indication: BLADDER TRANSITIONAL CELL CARCINOMA
     Dosage: 75 MG EVERY FOUR WEEKS
     Route: 042
     Dates: start: 20161216, end: 20161216
  12. ETIZOLAM [Concomitant]
     Active Substance: ETIZOLAM
     Indication: ATAXIA
     Dosage: 0.500 MG QD
     Route: 048
  13. ACETAMINOPHEN. [Concomitant]
     Active Substance: ACETAMINOPHEN
     Indication: CANCER PAIN
     Dosage: 600.000 MG TID
     Route: 048
     Dates: start: 20160923, end: 20161110
  14. NAPROXEN. [Concomitant]
     Active Substance: NAPROXEN
     Indication: CANCER PAIN
     Dosage: 300.000 MG TID
     Route: 048
     Dates: start: 20161022, end: 20161109

REACTIONS (1)
  - Myoclonus [Recovering/Resolving]

NARRATIVE: CASE EVENT DATE: 20161027
